FAERS Safety Report 20820059 (Version 3)
Quarter: 2022Q2

REPORT INFORMATION
  Report Type: Report from Study
  Country: KR (occurrence: KR)
  Receive Date: 20220512
  Receipt Date: 20220518
  Transmission Date: 20220721
  Serious: Yes (Other)
  Sender: FDA-Public Use
  Company Number: KR-NOVARTISPH-NVSC2022KR003308

PATIENT
  Age: 88 Year
  Sex: Female

DRUGS (10)
  1. BEOVU [Suspect]
     Active Substance: BROLUCIZUMAB-DBLL
     Indication: Neovascular age-related macular degeneration
     Dosage: 6 MG, Q2MO
     Route: 031
     Dates: start: 20210916
  2. BEOVU [Suspect]
     Active Substance: BROLUCIZUMAB-DBLL
     Dosage: 6 MG, Q2MO
     Route: 031
     Dates: start: 20211109
  3. LEVOFLOXACIN [Concomitant]
     Active Substance: LEVOFLOXACIN
     Indication: Post procedural complication
     Dosage: 1 DRP, 4, OPHTHALMIC SOLUTION
     Route: 047
     Dates: start: 20210916, end: 20211214
  4. LEVOFLOXACIN [Concomitant]
     Active Substance: LEVOFLOXACIN
     Dosage: 4 OCULAR DRIP, QD FOR A WEEK
     Route: 047
     Dates: start: 20211116
  5. LEVAMLODIPINE\TELMISARTAN [Concomitant]
     Active Substance: LEVAMLODIPINE\TELMISARTAN
     Indication: Hypertension
     Dosage: UNK, QD
     Route: 048
     Dates: start: 201004
  6. CLOPIDOGREL [Concomitant]
     Active Substance: CLOPIDOGREL BISULFATE
     Indication: Hypertension
     Dosage: UNK, QD
     Route: 048
     Dates: start: 201004
  7. DICHLOZID [Concomitant]
     Indication: Hypertension
     Dosage: UNK, QD
     Route: 048
     Dates: start: 201004
  8. LERCANIDIPINE HYDROCHLORIDE [Concomitant]
     Active Substance: LERCANIDIPINE HYDROCHLORIDE
     Indication: Hypertension
     Dosage: UNK, QD
     Route: 048
     Dates: start: 201004
  9. ATORVASTATIN CALCIUM [Concomitant]
     Active Substance: ATORVASTATIN CALCIUM
     Indication: Hyperlipidaemia
     Dosage: UNK, QD
     Route: 048
     Dates: start: 201004
  10. TANAMINE [Concomitant]
     Indication: Prophylaxis
     Dosage: UNK, QD
     Route: 048
     Dates: start: 201004

REACTIONS (3)
  - Macular oedema [Not Recovered/Not Resolved]
  - Condition aggravated [Recovering/Resolving]
  - Anterior chamber cell [Recovered/Resolved]

NARRATIVE: CASE EVENT DATE: 20211214
